FAERS Safety Report 6937694-2 (Version None)
Quarter: 2010Q3

REPORT INFORMATION
  Report Type: 
  Country: None (occurrence: None)
  Receive Date: 20100823
  Receipt Date: 20100811
  Transmission Date: 20110219
  Serious: Yes (Hospitalization)
  Sender: FDA-Public Use
  Company Number: BR-GENENTECH-305150

PATIENT
  Sex: Female
  Weight: 80 kg

DRUGS (2)
  1. RITUXIMAB [Suspect]
     Indication: SJOGREN'S SYNDROME
     Dosage: 1000 MG, Q15D
     Route: 042
     Dates: start: 20100723
  2. OMEPRAZOLE [Concomitant]
     Indication: PRODUCT USED FOR UNKNOWN INDICATION
     Dosage: 20 MG, UNK

REACTIONS (13)
  - ABDOMINAL PAIN UPPER [None]
  - ARTHRALGIA [None]
  - CHILLS [None]
  - DYSPNOEA [None]
  - HYPERSENSITIVITY [None]
  - IMMOBILE [None]
  - INFUSION RELATED REACTION [None]
  - MALAISE [None]
  - OEDEMA PERIPHERAL [None]
  - PAIN [None]
  - PAIN IN EXTREMITY [None]
  - PURPURA [None]
  - PYREXIA [None]
